FAERS Safety Report 10992324 (Version 6)
Quarter: 2015Q4

REPORT INFORMATION
  Report Type: Report from Study
  Country: EC (occurrence: EC)
  Receive Date: 20150406
  Receipt Date: 20151124
  Transmission Date: 20160304
  Serious: Yes (Other)
  Sender: FDA-Public Use
  Company Number: PHHY2015EC038143

PATIENT
  Age: 44 Year
  Sex: Male

DRUGS (3)
  1. GLIVEC [Suspect]
     Active Substance: IMATINIB MESYLATE
     Dosage: 400 MG, QD
     Route: 048
     Dates: start: 20150413
  2. GLIVEC [Suspect]
     Active Substance: IMATINIB MESYLATE
     Dosage: 400 MG, QD
     Route: 048
     Dates: start: 20140526, end: 20150325
  3. GLIVEC [Suspect]
     Active Substance: IMATINIB MESYLATE
     Indication: CHRONIC MYELOID LEUKAEMIA
     Dosage: 800 MG, QD
     Route: 048
     Dates: start: 200808

REACTIONS (10)
  - Headache [Unknown]
  - Tooth disorder [Not Recovered/Not Resolved]
  - Pain [Unknown]
  - Malaise [Recovered/Resolved]
  - Impaired healing [Recovering/Resolving]
  - Influenza [Recovered/Resolved]
  - Pain in extremity [Recovering/Resolving]
  - Malaise [Recovering/Resolving]
  - Nasal congestion [Recovered/Resolved]
  - Abdominal pain upper [Recovering/Resolving]

NARRATIVE: CASE EVENT DATE: 20150319
